FAERS Safety Report 4368267-6 (Version None)
Quarter: 2004Q2

REPORT INFORMATION
  Report Type: 
  Country: None (occurrence: None)
  Receive Date: 20040527
  Receipt Date: 20040506
  Transmission Date: 20050107
  Serious: No
  Sender: FDA-Public Use
  Company Number: F01200401046

PATIENT
  Age: 73 Year
  Sex: Male

DRUGS (9)
  1. XATRAL - (ALFUZOSIN) - TABLET PR - 10 MG [Suspect]
     Indication: BENIGN PROSTATIC HYPERPLASIA
     Dosage: 10 MG OD ORAL
     Route: 048
     Dates: start: 20020508, end: 20030528
  2. DIA VITE (MULTIVITAMINS) [Concomitant]
  3. APO-CAL (CALCIUM CARBONATE) [Concomitant]
  4. APO-FERROUS (FERROUS GLUCONATE) [Concomitant]
  5. LIPITOR [Concomitant]
  6. ROCALTROL [Concomitant]
  7. SODIUM BICARBONATE [Concomitant]
  8. COLCHICINE [Concomitant]
  9. EPREX [Concomitant]

REACTIONS (2)
  - LYMPHOMA [None]
  - PERITONEAL DIALYSIS [None]
